FAERS Safety Report 17223666 (Version 1)
Quarter: 2020Q1

REPORT INFORMATION
  Report Type: Spontaneous
  Country: GR (occurrence: GR)
  Receive Date: 20200102
  Receipt Date: 20200102
  Transmission Date: 20200409
  Serious: Yes (Hospitalization)
  Sender: FDA-Public Use
  Company Number: GR-ROCHE-2504085

PATIENT
  Age: 34 Year
  Sex: Male

DRUGS (5)
  1. MOXIFLOXACIN. [Suspect]
     Active Substance: MOXIFLOXACIN
     Indication: PNEUMONIA
     Route: 065
  2. LINEZOLID. [Suspect]
     Active Substance: LINEZOLID
     Indication: PNEUMONIA
     Route: 065
  3. PIPERACILLIN AND TAZOBACTAM [Suspect]
     Active Substance: PIPERACILLIN SODIUM\TAZOBACTAM SODIUM
     Indication: PNEUMONIA
     Route: 065
  4. CLARITHROMYCIN. [Suspect]
     Active Substance: CLARITHROMYCIN
     Indication: PNEUMONIA
     Route: 065
  5. OSELTAMIVIR [Suspect]
     Active Substance: OSELTAMIVIR
     Indication: PNEUMONIA
     Route: 065

REACTIONS (14)
  - Atypical pneumonia [Recovering/Resolving]
  - Nystagmus [Recovering/Resolving]
  - Muscular weakness [Recovering/Resolving]
  - Drug ineffective [Unknown]
  - Depressed level of consciousness [Recovering/Resolving]
  - Ophthalmoplegia [Recovering/Resolving]
  - Encephalitis [Recovered/Resolved with Sequelae]
  - Disorientation [Recovering/Resolving]
  - Somnolence [Recovering/Resolving]
  - Musculoskeletal stiffness [Recovering/Resolving]
  - Pleocytosis [Recovering/Resolving]
  - Confusional state [Recovering/Resolving]
  - Meningitis aseptic [Recovering/Resolving]
  - Epilepsy [Recovering/Resolving]
